FAERS Safety Report 13695922 (Version 2)
Quarter: 2017Q4

REPORT INFORMATION
  Report Type: Report from Study
  Country: None (occurrence: CA)
  Receive Date: 20170628
  Receipt Date: 20171018
  Transmission Date: 20180320
  Serious: Yes (Other)
  Sender: FDA-Public Use
  Company Number: CA-ABBVIE-17K-028-2009227-00

PATIENT
  Sex: Female

DRUGS (1)
  1. HUMIRA [Suspect]
     Active Substance: ADALIMUMAB
     Indication: RHEUMATOID ARTHRITIS
     Route: 058
     Dates: start: 20170524

REACTIONS (2)
  - Fatigue [Not Recovered/Not Resolved]
  - Eye haemorrhage [Recovered/Resolved]

NARRATIVE: CASE EVENT DATE: 2017
